FAERS Safety Report 7520595-9 (Version None)
Quarter: 2011Q2

REPORT INFORMATION
  Report Type: 
  Country: None (occurrence: None)
  Receive Date: 20110603
  Receipt Date: 20110524
  Transmission Date: 20111010
  Serious: Yes (Hospitalization)
  Sender: FDA-Public Use
  Company Number: US-BIOGENIDEC-2011BI019334

PATIENT
  Age: 74 Year
  Sex: Female
  Weight: 56 kg

DRUGS (6)
  1. CLOPIDOGREL [Concomitant]
     Route: 048
  2. TYSABRI [Suspect]
     Indication: MULTIPLE SCLEROSIS
     Route: 042
     Dates: start: 20080109
  3. LOVASTATIN [Concomitant]
     Route: 048
  4. TRAMADOL HYDROCHLORIDE [Concomitant]
     Route: 048
     Dates: start: 20110204
  5. DIPHENHYDRAMINE-APAP [Concomitant]
     Route: 048
  6. IBUPROFEN [Concomitant]

REACTIONS (1)
  - DECUBITUS ULCER [None]
